FAERS Safety Report 6039245-6 (Version None)
Quarter: 2009Q1

REPORT INFORMATION
  Report Type: 
  Country: None (occurrence: None)
  Receive Date: 20090115
  Receipt Date: 20090107
  Transmission Date: 20090719
  Serious: Yes (Other)
  Sender: FDA-Public Use
  Company Number: PHEH2009US00634

PATIENT
  Sex: Female

DRUGS (5)
  1. AREDIA [Suspect]
     Indication: BREAST CANCER
     Dosage: 90 MG, QMO
     Route: 042
     Dates: start: 20020201, end: 20021001
  2. ZOMETA [Suspect]
     Indication: BREAST CANCER
     Dosage: 4 MG, QMO
     Dates: start: 20021101, end: 20040701
  3. GEMCITABINE [Concomitant]
  4. HERCEPTIN [Concomitant]
  5. DECADRON                                /NET/ [Concomitant]

REACTIONS (2)
  - BONE DISORDER [None]
  - LOOSE TOOTH [None]
